FAERS Safety Report 12291083 (Version 4)
Quarter: 2016Q2

REPORT INFORMATION
  Report Type: Report from Study
  Country: TW (occurrence: TW)
  Receive Date: 20160421
  Receipt Date: 20160603
  Transmission Date: 20160815
  Serious: Yes (Hospitalization)
  Sender: FDA-Public Use
  Company Number: TW-JNJFOC-20160417127

PATIENT
  Age: 54 Year
  Sex: Male
  Weight: 60 kg

DRUGS (6)
  1. GENIQUIN [Concomitant]
     Indication: RHEUMATOID ARTHRITIS
     Route: 065
  2. CELECOXIB. [Concomitant]
     Active Substance: CELECOXIB
     Indication: RHEUMATOID ARTHRITIS
     Route: 065
  3. SIMPONI [Suspect]
     Active Substance: GOLIMUMAB
     Indication: RHEUMATOID ARTHRITIS
     Route: 058
     Dates: start: 20150409, end: 20160303
  4. ULTRACET [Concomitant]
     Active Substance: ACETAMINOPHEN\TRAMADOL HYDROCHLORIDE
     Indication: RHEUMATOID ARTHRITIS
     Route: 065
  5. ARHEUMA [Concomitant]
     Indication: RHEUMATOID ARTHRITIS
     Route: 065
  6. PREDNISOLONE. [Concomitant]
     Active Substance: PREDNISOLONE
     Indication: RHEUMATOID ARTHRITIS
     Route: 065

REACTIONS (11)
  - Mycobacterium tuberculosis complex test positive [Unknown]
  - Sleep disorder [Unknown]
  - Eczema asteatotic [Recovering/Resolving]
  - Tuberculosis [Unknown]
  - Chills [Not Recovered/Not Resolved]
  - Wheezing [Not Recovered/Not Resolved]
  - Intestinal tuberculosis [Unknown]
  - Pyrexia [Not Recovered/Not Resolved]
  - Nephrolithiasis [Unknown]
  - Pulmonary mass [Unknown]
  - Neoplasm malignant [Unknown]

NARRATIVE: CASE EVENT DATE: 201604
